FAERS Safety Report 10691886 (Version 2)
Quarter: 2015Q1

REPORT INFORMATION
  Report Type: Spontaneous
  Country: US (occurrence: US)
  Receive Date: 20150105
  Receipt Date: 20150129
  Transmission Date: 20150720
  Serious: Yes (Death)
  Sender: FDA-Public Use
  Company Number: US-009507513-1412USA013752

PATIENT
  Age: 83 Year
  Sex: Female

DRUGS (1)
  1. NASONEX [Suspect]
     Active Substance: MOMETASONE FUROATE
     Dosage: 2 DF, QD
     Route: 045
     Dates: start: 20120717

REACTIONS (1)
  - Death [Fatal]

NARRATIVE: CASE EVENT DATE: 20141227
